FAERS Safety Report 9058868 (Version 2)
Quarter: 2019Q3

REPORT INFORMATION
  Report Type: Report from Study
  Country: CA (occurrence: CA)
  Receive Date: 20130211
  Receipt Date: 20190701
  Transmission Date: 20191005
  Serious: Yes (Death, Hospitalization)
  Sender: FDA-Public Use
  Company Number: CA-PFIZER INC-2013049494

PATIENT
  Age: 67 Year
  Sex: Male

DRUGS (12)
  1. IRINOTECAN HCL [Suspect]
     Active Substance: IRINOTECAN HYDROCHLORIDE
     Dosage: 178 MG/M2, UNK
     Route: 042
  2. FLUOROURACIL. [Suspect]
     Active Substance: FLUOROURACIL
     Indication: GASTROINTESTINAL NEOPLASM
     Dosage: 550 MG, TOTAL, ROUTE: IVB
     Route: 040
  3. LOMOTIL [Concomitant]
     Active Substance: ATROPINE SULFATE\DIPHENOXYLATE HYDROCHLORIDE
     Dosage: UNK
     Dates: start: 20120101
  4. SULCRATE [Concomitant]
     Active Substance: SUCRALFATE
  5. AMLODIPINE [Concomitant]
     Active Substance: AMLODIPINE BESYLATE
     Dosage: UNK
     Dates: start: 20120423
  6. BRIVANIB ALANINATE [Suspect]
     Active Substance: BRIVANIB ALANINATE
     Indication: GASTROINTESTINAL NEOPLASM
     Dosage: 600 MG, 1X/DAY
     Route: 048
     Dates: start: 20120119, end: 20121015
  7. IRINOTECAN HCL [Suspect]
     Active Substance: IRINOTECAN HYDROCHLORIDE
     Dosage: 340 MG, 1X/DAY
     Route: 042
     Dates: start: 20121005
  8. FLUOROURACIL. [Suspect]
     Active Substance: FLUOROURACIL
     Dosage: 550 MG, BOLUS
     Route: 040
     Dates: start: 20121005
  9. LEUCOVORIN. [Suspect]
     Active Substance: LEUCOVORIN
     Indication: GASTROINTESTINAL NEOPLASM
  10. IRINOTECAN HCL [Suspect]
     Active Substance: IRINOTECAN HYDROCHLORIDE
     Indication: GASTROINTESTINAL NEOPLASM
     Dosage: 340 MG, 1 DAY
     Route: 042
     Dates: start: 20120119
  11. FLUOROURACIL. [Suspect]
     Active Substance: FLUOROURACIL
     Dosage: 1700 MG/M2, UNK
     Dates: start: 20120119
  12. FLUOROURACIL. [Suspect]
     Active Substance: FLUOROURACIL
     Dosage: 3250 MG, UNK
     Dates: start: 20121005

REACTIONS (4)
  - Troponin increased [Not Recovered/Not Resolved]
  - Pneumonia [Fatal]
  - Mucosal inflammation [Not Recovered/Not Resolved]
  - Dehydration [Not Recovered/Not Resolved]

NARRATIVE: CASE EVENT DATE: 20121015
